FAERS Safety Report 10388618 (Version 1)
Quarter: 2014Q3

REPORT INFORMATION
  Report Type: Report from Study
  Country: US (occurrence: US)
  Receive Date: 20140815
  Receipt Date: 20140815
  Transmission Date: 20150326
  Serious: Yes (Other)
  Sender: FDA-Public Use
  Company Number: US-ABBVIE-14P-163-1271844-00

PATIENT
  Sex: Female

DRUGS (2)
  1. HUMIRA [Suspect]
     Active Substance: ADALIMUMAB
  2. HUMIRA [Suspect]
     Active Substance: ADALIMUMAB
     Indication: JUVENILE IDIOPATHIC ARTHRITIS
     Dates: start: 2013

REACTIONS (7)
  - Photosensitivity reaction [Not Recovered/Not Resolved]
  - Pain [Unknown]
  - Tonsillar hypertrophy [Recovered/Resolved]
  - Poor quality sleep [Not Recovered/Not Resolved]
  - Adenoidal hypertrophy [Recovered/Resolved]
  - Exfoliative rash [Not Recovered/Not Resolved]
  - Erythema [Not Recovered/Not Resolved]
